FAERS Safety Report 21221025 (Version 1)
Quarter: 2022Q3

REPORT INFORMATION
  Report Type: Spontaneous
  Country: US (occurrence: US)
  Receive Date: 20220817
  Receipt Date: 20220817
  Transmission Date: 20221026
  Serious: Yes (Hospitalization)
  Sender: FDA-Public Use
  Company Number: US-BRISTOL-MYERS SQUIBB COMPANY-2022-090494

PATIENT
  Age: 89 Year
  Sex: Male

DRUGS (1)
  1. REVLIMID [Suspect]
     Active Substance: LENALIDOMIDE
     Indication: Product used for unknown indication
     Dosage: REVLIMID 10 MG ?TAKE 1 CAPSULE BY MOUTH EVERY DAY FOR 21 DAYS THEN OFF FOR 7 DAYS EVERY 28 DAY CYCLE
     Route: 048
     Dates: start: 20120808

REACTIONS (5)
  - Malaise [Unknown]
  - Cough [Unknown]
  - Abdominal pain upper [Unknown]
  - Headache [Unknown]
  - Tremor [Unknown]
